FAERS Safety Report 24764397 (Version 1)
Quarter: 2024Q4

REPORT INFORMATION
  Report Type: Spontaneous
  Country: CA (occurrence: CA)
  Receive Date: 20241223
  Receipt Date: 20241223
  Transmission Date: 20250115
  Serious: Yes (Hospitalization, Other)
  Sender: HLS THERAPEUTICS
  Company Number: CA-HLS-202403117

PATIENT
  Age: 53 Year
  Sex: Female

DRUGS (7)
  1. CLOZAPINE [Suspect]
     Active Substance: CLOZAPINE
     Indication: Schizoaffective disorder
     Dosage: TABLETS DOSAGE FORM
     Route: 065
  2. CLOZAPINE [Suspect]
     Active Substance: CLOZAPINE
     Indication: Schizoaffective disorder
     Dosage: 1 EVERY 1 DAYS?TABLETS DOSAGE FORM
     Route: 065
  3. CLOZAPINE [Suspect]
     Active Substance: CLOZAPINE
     Indication: Schizoaffective disorder
     Dosage: CYCLICAL?TABLETS DOSAGE FORM
     Route: 065
  4. LORAZEPAM [Suspect]
     Active Substance: LORAZEPAM
     Indication: Schizoaffective disorder
     Dosage: 3 EVERY 1 DAYS?AMOUNT: 1 MILLIGRAM?NOT SPECIFIED DOSAGE FORM
     Route: 065
  5. PERPHENAZINE [Suspect]
     Active Substance: PERPHENAZINE
     Indication: Schizoaffective disorder
     Dosage: NOT SPECIFIED DOSAGE FORM
     Route: 065
  6. QUETIAPINE [Suspect]
     Active Substance: QUETIAPINE
     Indication: Schizoaffective disorder
     Dosage: TABLETS DOSAGE FORM
     Route: 065
  7. SERTRALINE [Suspect]
     Active Substance: SERTRALINE HYDROCHLORIDE
     Indication: Schizoaffective disorder
     Dosage: 1 EVERY 1 DAYS?AMOUNT: 125 MILLIGRAM?CAPSULES DOSAGE FORM
     Route: 065

REACTIONS (8)
  - Dyskinesia [Unknown]
  - Dystonia [Unknown]
  - Head titubation [Unknown]
  - Hyponatraemia [Unknown]
  - Parkinsonism [Unknown]
  - Polydipsia [Unknown]
  - Seizure [Unknown]
  - Tremor [Unknown]
